FAERS Safety Report 8227539-5 (Version None)
Quarter: 2012Q1

REPORT INFORMATION
  Report Type: 
  Country: None (occurrence: None)
  Receive Date: 20120322
  Receipt Date: 20120319
  Transmission Date: 20120608
  Serious: Yes (Other)
  Sender: FDA-Public Use
  Company Number: GB-ASTELLAS-2012EU002060

PATIENT
  Sex: Male
  Weight: 77 kg

DRUGS (6)
  1. LOSARTAN POTASSIUM [Concomitant]
     Dosage: 50 MG, UNKNOWN/D
     Route: 048
  2. AMLODIPINE [Concomitant]
     Dosage: 5 MG, UNKNOWN/D
     Route: 048
  3. PRAVASTATIN [Concomitant]
     Dosage: 40 MG, UNKNOWN/D
     Route: 048
  4. SOLIFENACIN SUCCINATE [Suspect]
     Indication: HYPERTONIC BLADDER
     Dosage: 5 MG, UNKNOWN/D
     Route: 048
     Dates: start: 20120209
  5. ASPIRIN [Concomitant]
     Dosage: 75 MG, UNKNOWN/D
     Route: 048
  6. BENDROFLUMETHIAZIDE [Concomitant]
     Dosage: 2.5 MG, UNKNOWN/D
     Route: 048

REACTIONS (2)
  - OEDEMA PERIPHERAL [None]
  - WEIGHT INCREASED [None]
